FAERS Safety Report 7265833-5 (Version None)
Quarter: 2011Q1

REPORT INFORMATION
  Report Type: 
  Country: None (occurrence: None)
  Receive Date: 20110131
  Receipt Date: 20110127
  Transmission Date: 20110831
  Serious: Yes (Death)
  Sender: FDA-Public Use
  Company Number: A0903714A

PATIENT
  Age: 45 Year
  Sex: Male
  Weight: 76.4 kg

DRUGS (16)
  1. HYDROCHLOROTHIAZIDE [Concomitant]
  2. XOLAIR [Concomitant]
  3. EPIPEN [Concomitant]
  4. VOSPIRE [Concomitant]
  5. DARVOCET-N 100 [Concomitant]
  6. SINGULAIR [Concomitant]
  7. ALBUTEROL [Concomitant]
  8. ZYRTEC [Concomitant]
  9. XANAX [Concomitant]
  10. THEOPHYLLINE [Concomitant]
  11. FLOVENT [Suspect]
     Indication: ASTHMA
     Dosage: 2PUFF TWICE PER DAY
     Route: 055
     Dates: start: 20030101
  12. COZAAR [Concomitant]
  13. PREDNISONE [Concomitant]
  14. ATROVENT [Concomitant]
  15. XOPENEX [Concomitant]
  16. FLEXERIL [Concomitant]

REACTIONS (3)
  - DEATH [None]
  - PNEUMONIA [None]
  - ASTHMA [None]
